FAERS Safety Report 12644617 (Version 1)
Quarter: 2016Q3

REPORT INFORMATION
  Report Type: Spontaneous
  Country: US (occurrence: US)
  Receive Date: 20160811
  Receipt Date: 20160811
  Transmission Date: 20161109
  Serious: Yes (Hospitalization)
  Sender: FDA-Public Use
  Company Number: US-BAYER-2016-152887

PATIENT
  Age: 31 Year
  Sex: Female

DRUGS (5)
  1. LORTAB [Concomitant]
     Active Substance: ACETAMINOPHEN\HYDROCODONE BITARTRATE
  2. ZOFRAN [Concomitant]
     Active Substance: ONDANSETRON HYDROCHLORIDE
  3. DEMEROL [Concomitant]
     Active Substance: MEPERIDINE HYDROCHLORIDE
  4. YASMIN [Suspect]
     Active Substance: DROSPIRENONE\ETHINYL ESTRADIOL
     Dosage: UNK
  5. YAZ [Suspect]
     Active Substance: DROSPIRENONE\ETHINYL ESTRADIOL
     Dosage: UNK

REACTIONS (1)
  - Deep vein thrombosis [None]

NARRATIVE: CASE EVENT DATE: 20061231
